FAERS Safety Report 24788026 (Version 1)
Quarter: 2024Q4

REPORT INFORMATION
  Report Type: Report from Study
  Country: US (occurrence: US)
  Receive Date: 20241230
  Receipt Date: 20241230
  Transmission Date: 20250115
  Serious: Yes (Other)
  Sender: TEVA
  Company Number: US-TEVA-VS-3261156

PATIENT
  Age: 62 Year
  Sex: Male
  Weight: 77.111 kg

DRUGS (2)
  1. AUSTEDO [Suspect]
     Active Substance: DEUTETRABENAZINE
     Indication: Tardive dyskinesia
     Route: 065
  2. AUSTEDO [Suspect]
     Active Substance: DEUTETRABENAZINE
     Indication: Tardive dyskinesia
     Route: 065

REACTIONS (9)
  - Suicidal ideation [Unknown]
  - Myalgia [Unknown]
  - Fatigue [Unknown]
  - Impaired quality of life [Unknown]
  - Adverse drug reaction [Unknown]
  - Tardive dyskinesia [Unknown]
  - Mental disorder [Unknown]
  - Dysphagia [Unknown]
  - Memory impairment [Unknown]
